FAERS Safety Report 6108764-6 (Version None)
Quarter: 2009Q1

REPORT INFORMATION
  Report Type: 
  Country: None (occurrence: None)
  Receive Date: 20090310
  Receipt Date: 20090305
  Transmission Date: 20090719
  Serious: Yes (Other)
  Sender: FDA-Public Use
  Company Number: GR-JNJFOC-20090201123

PATIENT
  Age: 40 Year
  Sex: Male

DRUGS (2)
  1. DURAGESIC-100 [Suspect]
     Indication: CANCER PAIN
     Route: 062
  2. CHEMOTHERAPY [Concomitant]
     Indication: LUNG NEOPLASM MALIGNANT

REACTIONS (1)
  - DERMATITIS ALLERGIC [None]
